FAERS Safety Report 4367823-9 (Version None)
Quarter: 2004Q2

REPORT INFORMATION
  Report Type: 
  Country: None (occurrence: None)
  Receive Date: 20040527
  Receipt Date: 20030527
  Transmission Date: 20050107
  Serious: Yes (Hospitalization)
  Sender: FDA-Public Use
  Company Number: ZONI001117

PATIENT
  Age: 38 Year
  Sex: Female
  Weight: 53.978 kg

DRUGS (2)
  1. ZONEGRAN [Suspect]
     Indication: PAIN
     Dosage: 300 MG DAILY ORAL
     Route: 048
     Dates: start: 20030501, end: 20030101
  2. ELAVIL [Concomitant]

REACTIONS (3)
  - GASTRITIS [None]
  - NAUSEA [None]
  - VOMITING [None]
